FAERS Safety Report 10498505 (Version 1)
Quarter: 2014Q4

REPORT INFORMATION
  Report Type: Report from Study
  Country: CA (occurrence: CA)
  Receive Date: 20141006
  Receipt Date: 20141006
  Transmission Date: 20150528
  Serious: Yes (Other)
  Sender: FDA-Public Use
  Company Number: CA-JNJFOC-20140926573

PATIENT
  Sex: Male
  Weight: 92 kg

DRUGS (8)
  1. AZATHIOPRINE. [Concomitant]
     Active Substance: AZATHIOPRINE
     Dosage: 2 TABLETS EACH MORNING
     Route: 065
     Dates: start: 20140922
  2. APO PREDNISONE [Concomitant]
     Dosage: 1 TABLETS EACH MORNING
     Route: 065
     Dates: start: 20140729
  3. REMICADE [Suspect]
     Active Substance: INFLIXIMAB
     Indication: CROHN^S DISEASE
     Route: 042
     Dates: start: 20140924
  4. APO HYDRO [Concomitant]
     Dosage: HALF TABLET DAILY
     Route: 065
     Dates: start: 20140618
  5. RABEPRAZOLE [Concomitant]
     Active Substance: RABEPRAZOLE
     Route: 065
     Dates: start: 20140922
  6. VITAMIN B12 [Concomitant]
     Active Substance: CYANOCOBALAMIN
     Route: 065
     Dates: start: 20100611
  7. REMICADE [Suspect]
     Active Substance: INFLIXIMAB
     Indication: CROHN^S DISEASE
     Route: 042
     Dates: start: 200912
  8. PENTASA [Concomitant]
     Active Substance: MESALAMINE
     Dosage: 4 TABLETS TWICE DAILY
     Route: 065
     Dates: start: 20140618

REACTIONS (1)
  - Precancerous cells present [Unknown]
